FAERS Safety Report 8456618-2 (Version None)
Quarter: 2012Q2

REPORT INFORMATION
  Report Type: 
  Country: None (occurrence: None)
  Receive Date: 20120621
  Receipt Date: 20120614
  Transmission Date: 20120825
  Serious: Yes (Other)
  Sender: FDA-Public Use
  Company Number: CA-ROCHE-GNE287071

PATIENT
  Sex: Male
  Weight: 92 kg

DRUGS (9)
  1. OMALIZUMAB [Suspect]
     Dosage: 375 MG, Q2W
     Route: 058
     Dates: start: 20090527
  2. OMALIZUMAB [Suspect]
     Dosage: 375 MG, Q2W
     Route: 058
     Dates: start: 20090707
  3. ADVAIR DISKUS 100/50 [Concomitant]
     Indication: PRODUCT USED FOR UNKNOWN INDICATION
  4. OMALIZUMAB [Suspect]
     Indication: ASTHMA
     Dosage: 375 MG, Q2W
     Route: 058
     Dates: start: 20061117
  5. OMALIZUMAB [Suspect]
     Route: 058
     Dates: start: 20110630
  6. VENTOLIN [Concomitant]
  7. SYMBICORT [Concomitant]
  8. PREDNISONE TAB [Concomitant]
     Indication: PRODUCT USED FOR UNKNOWN INDICATION
  9. SINGULAIR [Concomitant]

REACTIONS (17)
  - ASTHMA [None]
  - DRUG DOSE OMISSION [None]
  - HYPOVENTILATION [None]
  - DYSPNOEA [None]
  - HYPERSENSITIVITY [None]
  - INFLUENZA [None]
  - PRODUCTIVE COUGH [None]
  - NASOPHARYNGITIS [None]
  - CONDITION AGGRAVATED [None]
  - PNEUMOTHORAX [None]
  - NASAL CONGESTION [None]
  - BLOOD PRESSURE INCREASED [None]
  - CHEST PAIN [None]
  - MULTIPLE ALLERGIES [None]
  - WHEEZING [None]
  - RHINORRHOEA [None]
  - SINUS CONGESTION [None]
